FAERS Safety Report 18196303 (Version 1)
Quarter: 2020Q3

REPORT INFORMATION
  Report Type: Spontaneous
  Country: US (occurrence: US)
  Receive Date: 20200825
  Receipt Date: 20200825
  Transmission Date: 20201103
  Serious: Yes (Other)
  Sender: FDA-Public Use
  Company Number: None

PATIENT
  Age: 68 Year
  Sex: Female
  Weight: 66.15 kg

DRUGS (1)
  1. OXYCODONE HYDROCHLORIDE 10 MG [Suspect]
     Active Substance: OXYCODONE HYDROCHLORIDE
     Indication: PAIN
     Dosage: ?          QUANTITY:1 TABLET(S);OTHER FREQUENCY:1 EVERY 4?6 HOURS;?
     Route: 048

REACTIONS (4)
  - Withdrawal syndrome [None]
  - Product substitution issue [None]
  - Breakthrough pain [None]
  - Anger [None]

NARRATIVE: CASE EVENT DATE: 20200308
